FAERS Safety Report 13266222 (Version 3)
Quarter: 2017Q1

REPORT INFORMATION
  Report Type: Report from Study
  Country: US (occurrence: US)
  Receive Date: 20170223
  Receipt Date: 20170314
  Transmission Date: 20170428
  Serious: Yes (Hospitalization, Other)
  Sender: FDA-Public Use
  Company Number: US-GILEAD-2017-0254228

PATIENT
  Age: 75 Year
  Sex: Female
  Weight: 90.7 kg

DRUGS (8)
  1. IDELALISIB [Suspect]
     Active Substance: IDELALISIB
     Indication: CHRONIC LYMPHOCYTIC LEUKAEMIA
     Dosage: 150 MG, BID
     Route: 048
     Dates: start: 20160323
  2. METOPROLOL. [Concomitant]
     Active Substance: METOPROLOL
     Indication: BLOOD PRESSURE ABNORMAL
  3. XANAX [Concomitant]
     Active Substance: ALPRAZOLAM
     Indication: ANXIETY
  4. LASIX [Concomitant]
     Active Substance: FUROSEMIDE
  5. COUMADIN [Concomitant]
     Active Substance: WARFARIN SODIUM
  6. PRAVASTATIN. [Concomitant]
     Active Substance: PRAVASTATIN
     Indication: HYPERCHOLESTEROLAEMIA
  7. LISINOPRIL. [Concomitant]
     Active Substance: LISINOPRIL
     Indication: BLOOD PRESSURE ABNORMAL
  8. OMEPRAZOLE. [Concomitant]
     Active Substance: OMEPRAZOLE
     Indication: GASTROOESOPHAGEAL REFLUX DISEASE

REACTIONS (10)
  - Infection susceptibility increased [Not Recovered/Not Resolved]
  - Pneumonia [Not Recovered/Not Resolved]
  - Chromaturia [Unknown]
  - Mental status changes [Unknown]
  - Burning sensation [Not Recovered/Not Resolved]
  - Dizziness [Unknown]
  - Muscular weakness [Not Recovered/Not Resolved]
  - Blood urine present [Not Recovered/Not Resolved]
  - Urinary tract infection [Not Recovered/Not Resolved]
  - Nasopharyngitis [Not Recovered/Not Resolved]
